FAERS Safety Report 7900061-9 (Version None)
Quarter: 2011Q4

REPORT INFORMATION
  Report Type: 
  Country: None (occurrence: None)
  Receive Date: 20111108
  Receipt Date: 20111028
  Transmission Date: 20120403
  Serious: Yes (Life-Threatening)
  Sender: FDA-Public Use
  Company Number: CL-BIOGENIDEC-2011BI041610

PATIENT
  Sex: Female

DRUGS (1)
  1. TYSABRI [Suspect]
     Indication: MULTIPLE SCLEROSIS
     Route: 042
     Dates: start: 20110902

REACTIONS (2)
  - ENCEPHALITIS HERPES [None]
  - TUBULOINTERSTITIAL NEPHRITIS [None]
